FAERS Safety Report 6366193-4 (Version None)
Quarter: 2009Q3

REPORT INFORMATION
  Report Type: 
  Country: None (occurrence: None)
  Receive Date: 20090921
  Receipt Date: 20090910
  Transmission Date: 20100115
  Serious: Yes (Hospitalization, Other)
  Sender: FDA-Public Use
  Company Number: US-RANBAXY-2009US-28023

PATIENT

DRUGS (1)
  1. VALACYCLOVIR HYDROCHLORIDE [Suspect]
     Indication: GENITAL HERPES
     Dosage: 1000 MG, BID
     Route: 048

REACTIONS (17)
  - ABNORMAL BEHAVIOUR [None]
  - ACUTE PSYCHOSIS [None]
  - AFFECT LABILITY [None]
  - DELUSION OF GRANDEUR [None]
  - DISTRACTIBILITY [None]
  - DISTURBANCE IN ATTENTION [None]
  - HALLUCINATION, AUDITORY [None]
  - INSOMNIA [None]
  - IRRITABILITY [None]
  - JUDGEMENT IMPAIRED [None]
  - LEUKOCYTOSIS [None]
  - LOGORRHOEA [None]
  - MANIA [None]
  - RESTLESSNESS [None]
  - SPEECH DISORDER [None]
  - TACHYCARDIA [None]
  - TACHYPNOEA [None]
